FAERS Safety Report 4551028-2 (Version None)
Quarter: 2005Q1

REPORT INFORMATION
  Report Type: 
  Country: None (occurrence: None)
  Receive Date: 20050113
  Receipt Date: 20040401
  Transmission Date: 20050727
  Serious: No
  Sender: FDA-Public Use
  Company Number: US-BRISTOL-MYERS SQUIBB COMPANY-12548442

PATIENT
  Age: 26 Year
  Sex: Female

DRUGS (3)
  1. TRAZODONE HCL [Suspect]
     Indication: SCHIZOPHRENIA
     Dosage: CURRENT DOSE OF 150 MG, 1 TAB/DAY HS (REPORTER UNABLE TO PROVIDE DOSE AT TIME OF EVENT)
     Route: 048
  2. ZOLOFT [Concomitant]
  3. SEROQUEL [Concomitant]

REACTIONS (1)
  - DRUG SCREEN POSITIVE [None]
